FAERS Safety Report 19436465 (Version 1)
Quarter: 2021Q2

REPORT INFORMATION
  Report Type: Spontaneous
  Country: NO (occurrence: NO)
  Receive Date: 20210618
  Receipt Date: 20210618
  Transmission Date: 20210717
  Serious: Yes (Hospitalization, Other)
  Sender: FDA-Public Use
  Company Number: NO-ORGANON-O2106NOR000820

PATIENT
  Sex: Male

DRUGS (2)
  1. ZINC. [Concomitant]
     Active Substance: ZINC
  2. PROSCAR [Suspect]
     Active Substance: FINASTERIDE
     Indication: ALOPECIA
     Dosage: 1/4 OR 1/5 OF A TABLET 4?5 TIMES A WEEK
     Route: 048
     Dates: start: 2018

REACTIONS (13)
  - Hyperhidrosis [Unknown]
  - Muscle spasms [Unknown]
  - Anxiety [Unknown]
  - Weight decreased [Unknown]
  - Feeling hot [Unknown]
  - Restlessness [Unknown]
  - Erectile dysfunction [Not Recovered/Not Resolved]
  - Adverse event [Unknown]
  - Alopecia [Unknown]
  - Stress [Unknown]
  - Exercise tolerance decreased [Unknown]
  - Loss of libido [Unknown]
  - Erythema [Unknown]

NARRATIVE: CASE EVENT DATE: 201901
